FAERS Safety Report 4333796-8 (Version None)
Quarter: 2004Q2

REPORT INFORMATION
  Report Type: 
  Country: None (occurrence: None)
  Receive Date: 20040406
  Receipt Date: 20040406
  Transmission Date: 20050107
  Serious: Yes (Other)
  Sender: FDA-Public Use
  Company Number: None

PATIENT
  Age: 25 Year
  Sex: Female
  Weight: 71.6683 kg

DRUGS (2)
  1. EFFEXOR XR [Suspect]
     Indication: STRESS SYMPTOMS
     Dosage: 150 MG ORAL
     Route: 048
     Dates: start: 20030923, end: 20040405
  2. PLAQUENIL [Concomitant]

REACTIONS (7)
  - DRUG ADDICT [None]
  - DRUG WITHDRAWAL SYNDROME [None]
  - FEELING ABNORMAL [None]
  - IMPAIRED WORK ABILITY [None]
  - LOSS OF CONSCIOUSNESS [None]
  - PALPITATIONS [None]
  - TREMOR [None]
